FAERS Safety Report 15399372 (Version 1)
Quarter: 2018Q3

REPORT INFORMATION
  Report Type: Spontaneous
  Country: US (occurrence: US)
  Receive Date: 20180918
  Receipt Date: 20180918
  Transmission Date: 20181010
  Serious: No
  Sender: FDA-Public Use
  Company Number: US-AMGEN-USASP2017157174

PATIENT
  Age: 76 Year
  Sex: Female

DRUGS (2)
  1. NEUPOGEN [Suspect]
     Active Substance: FILGRASTIM
     Indication: INFLAMMATION
     Dosage: UNK UNK, QD
     Route: 065
  2. NEUPOGEN [Suspect]
     Active Substance: FILGRASTIM
     Indication: NEURODEGENERATIVE DISORDER
     Dosage: UNK UNK, QOD
     Route: 065

REACTIONS (2)
  - Laboratory test abnormal [Unknown]
  - Off label use [Unknown]
